FAERS Safety Report 5780673-1 (Version None)
Quarter: 2008Q2

REPORT INFORMATION
  Report Type: 
  Country: None (occurrence: None)
  Receive Date: 20080620
  Receipt Date: 20080310
  Transmission Date: 20081010
  Serious: No
  Sender: FDA-Public Use
  Company Number: US-BOEHRINGER INGELHEIM GMBH, GERMANY-2007-BP-15850BP

PATIENT
  Sex: Male
  Weight: 82 kg

DRUGS (14)
  1. MIRAPEX [Suspect]
     Indication: PARKINSON'S DISEASE
     Dates: start: 19970820, end: 20050801
  2. LORAZEPAM [Concomitant]
     Indication: PARKINSON'S DISEASE
  3. CARBIDOPA AND LEVODOPA [Concomitant]
     Indication: PARKINSON'S DISEASE
  4. COMTAN [Concomitant]
  5. DIFLORASONE [Concomitant]
  6. CARBIDOPA/LEVODOPA ER [Concomitant]
  7. TOPROL-XL [Concomitant]
  8. DOVONEX [Concomitant]
  9. STALEVO 100 [Concomitant]
  10. LEVAQUIN [Concomitant]
  11. ERYTHROMYCIN [Concomitant]
  12. PERIACTIN [Concomitant]
  13. TASMAR [Concomitant]
  14. CHLORTRIMITON [Concomitant]

REACTIONS (4)
  - EMOTIONAL DISTRESS [None]
  - INJURY [None]
  - OBSESSIVE-COMPULSIVE DISORDER [None]
  - PATHOLOGICAL GAMBLING [None]
